FAERS Safety Report 8982221 (Version 1)
Quarter: 2012Q4

REPORT INFORMATION
  Report Type: 
  Country: US (occurrence: US)
  Receive Date: 20121222
  Receipt Date: 20121222
  Transmission Date: 20130627
  Serious: No
  Sender: FDA-Public Use
  Company Number: US-ASTRAZENECA-2012SE89383

PATIENT
  Age: 73 Year
  Sex: Female

DRUGS (11)
  1. CAPRELSA [Suspect]
     Route: 048
     Dates: start: 20121113
  2. CALCIUM [Concomitant]
  3. CHOLECALAFEROL [Concomitant]
  4. COMPAZINE [Concomitant]
  5. CYTOMEL [Concomitant]
  6. LEVOTHYROXINE [Concomitant]
  7. MOTRIN [Concomitant]
  8. PILOCAROPINE [Concomitant]
  9. PREVACID [Concomitant]
  10. SINGULAIR [Concomitant]
  11. VICODIN [Concomitant]

REACTIONS (5)
  - Dyspepsia [Unknown]
  - Diarrhoea [Unknown]
  - Blood pressure increased [Unknown]
  - Insomnia [Unknown]
  - Rash [Unknown]
